FAERS Safety Report 4711538-1 (Version None)
Quarter: 2005Q3

REPORT INFORMATION
  Report Type: 
  Country: None (occurrence: None)
  Receive Date: 20050708
  Receipt Date: 20050708
  Transmission Date: 20060218
  Serious: Yes (Death)
  Sender: FDA-Public Use
  Company Number: None

PATIENT
  Sex: Female
  Weight: 56.5 kg

DRUGS (6)
  1. TARCEVA [Suspect]
     Indication: GLIOBLASTOMA MULTIFORME
     Dosage: 320 MG DAILY ORAL
     Route: 048
     Dates: start: 20050411, end: 20050704
  2. TEMODAR [Suspect]
     Dosage: 150 MG DAYS 1 THRU 5 ORAL
     Route: 048
  3. DECADRON [Concomitant]
  4. FLECAMIDE [Concomitant]
  5. BENICAR [Concomitant]
  6. PREMARIN [Concomitant]

REACTIONS (3)
  - ARRHYTHMIA [None]
  - NEOPLASM PROGRESSION [None]
  - PULMONARY EMBOLISM [None]
